FAERS Safety Report 20446512 (Version 1)
Quarter: 2022Q1

REPORT INFORMATION
  Report Type: Spontaneous
  Country: CA (occurrence: None)
  Receive Date: 20220208
  Receipt Date: 20220208
  Transmission Date: 20220423
  Serious: Yes (Other)
  Sender: FDA-Public Use
  Company Number: CA-ROCHE-2899460

PATIENT
  Age: 64 Year
  Sex: Male

DRUGS (1)
  1. OCREVUS [Suspect]
     Active Substance: OCRELIZUMAB
     Indication: Relapsing-remitting multiple sclerosis
     Dosage: SOLUTION INTRAVENOUS, SINGLE USE VIAL
     Route: 042

REACTIONS (4)
  - Blood urine present [Recovered/Resolved]
  - Muscle spasms [Recovered/Resolved]
  - Drug ineffective [Unknown]
  - Multiple sclerosis [Recovered/Resolved]
